FAERS Safety Report 8588499-0 (Version None)
Quarter: 2012Q3

REPORT INFORMATION
  Report Type: 
  Country: None (occurrence: None)
  Receive Date: 20120813
  Receipt Date: 20120801
  Transmission Date: 20120928
  Serious: Yes (Other)
  Sender: FDA-Public Use
  Company Number: BR-JNJFOC-20120803964

PATIENT
  Sex: Male

DRUGS (2)
  1. ZYTIGA [Suspect]
     Indication: PROSTATE CANCER
     Route: 048
     Dates: end: 20120701
  2. MULTIPLE CONCOMITANT DRUGS [Concomitant]
     Route: 065

REACTIONS (1)
  - ABDOMINAL PAIN [None]
